FAERS Safety Report 7428699-6 (Version None)
Quarter: 2011Q2

REPORT INFORMATION
  Report Type: 
  Country: None (occurrence: None)
  Receive Date: 20110413
  Receipt Date: 20110405
  Transmission Date: 20111010
  Serious: Yes (Hospitalization)
  Sender: FDA-Public Use
  Company Number: DSJ-2011-06693

PATIENT
  Age: 84 Year
  Sex: Male

DRUGS (8)
  1. LANDEL (EFONIDIPINE HYDROCHLORIDE) (EFONIDIPINE HYDROCHLORIDE) [Concomitant]
  2. ETISEDAN (ETIZOLAM) (ETIZOLAM) [Suspect]
     Indication: PRODUCT USED FOR UNKNOWN INDICATION
  3. OMEPRAZOLE [Suspect]
     Indication: PRODUCT USED FOR UNKNOWN INDICATION
  4. TETUCUR (IRON) (IRON) [Concomitant]
  5. OLMETEC (OLMESARTAN MEDOXOMIL) (TABLET) (OLMESARTAN MEDOXOMIL) [Suspect]
     Indication: HYPERTENSION
     Dosage: 10 MG, PER ORAL
     Route: 048
     Dates: start: 20101001, end: 20110403
  6. KYUCAL (CHARCOAL, ACTIVATED) (CHARCOAL, ACTIVATED) [Concomitant]
  7. RINGEREAZE (LOXOPROFEN SODIUM) (LOXOPROFEN SODIUM [Suspect]
     Indication: PRODUCT USED FOR UNKNOWN INDICATION
  8. LASIX [Concomitant]

REACTIONS (1)
  - INTERSTITIAL LUNG DISEASE [None]
